FAERS Safety Report 4582435-X (Version None)
Quarter: 2005Q1

REPORT INFORMATION
  Report Type: 
  Country: None (occurrence: None)
  Receive Date: 20050215
  Receipt Date: 20050203
  Transmission Date: 20050727
  Serious: Yes (Hospitalization)
  Sender: FDA-Public Use
  Company Number: 200510925US

PATIENT
  Sex: Male
  Weight: 44.5 kg

DRUGS (10)
  1. TAXOTERE [Suspect]
     Indication: NON-SMALL CELL LUNG CANCER
     Route: 042
     Dates: start: 20040809, end: 20041124
  2. GEMZAR [Suspect]
     Indication: NON-SMALL CELL LUNG CANCER
     Route: 042
     Dates: start: 20040809, end: 20041006
  3. CARBOPLATIN [Suspect]
     Indication: NON-SMALL CELL LUNG CANCER
     Dosage: DOSE: AUC 1.5
     Route: 042
     Dates: start: 20041027, end: 20041124
  4. RADIOTHERAPY [Suspect]
     Indication: NON-SMALL CELL LUNG CANCER
     Dosage: DOSE: 1.8 GY/FRACTION
     Dates: start: 20041021, end: 20041213
  5. FENTANYL [Concomitant]
     Indication: PAIN
     Route: 062
     Dates: start: 20041201
  6. PREVACID [Concomitant]
     Indication: GASTROOESOPHAGEAL REFLUX DISEASE
     Dates: start: 20041201
  7. MEGACE [Concomitant]
     Indication: INCREASED APPETITE
     Dates: start: 20041204, end: 20041214
  8. REGLAN [Concomitant]
     Indication: GASTROOESOPHAGEAL REFLUX DISEASE
     Dosage: FREQUENCY: BEFORE MEALS AND AT BEDTIME
     Dates: start: 20041202
  9. PREDNISONE [Concomitant]
     Dates: start: 20041202
  10. PAXIL [Concomitant]
     Dates: start: 20041201

REACTIONS (7)
  - DYSPHAGIA [None]
  - MALNUTRITION [None]
  - MUCOSAL INFLAMMATION [None]
  - PNEUMONIA ASPIRATION [None]
  - RADIATION OESOPHAGITIS [None]
  - STOMATITIS [None]
  - WEIGHT DECREASED [None]
